FAERS Safety Report 4384017-1 (Version None)
Quarter: 2004Q2

REPORT INFORMATION
  Report Type: 
  Country: None (occurrence: None)
  Receive Date: 20040621
  Receipt Date: 20040604
  Transmission Date: 20050107
  Serious: Yes (Hospitalization)
  Sender: FDA-Public Use
  Company Number: DSA_24498_2004

PATIENT
  Sex: Female

DRUGS (2)
  1. LORAZEPAM [Suspect]
     Dosage: 20 MG ONCE PO
     Route: 048
     Dates: start: 20040529, end: 20040529
  2. REMERGIL [Suspect]
     Dosage: 225 MG ONCE PO
     Route: 048
     Dates: start: 20040529, end: 20040529

REACTIONS (3)
  - HEART RATE INCREASED [None]
  - MULTIPLE DRUG OVERDOSE INTENTIONAL [None]
  - SOMNOLENCE [None]
